FAERS Safety Report 20339978 (Version 1)
Quarter: 2022Q1

REPORT INFORMATION
  Report Type: Spontaneous
  Country: CA (occurrence: CA)
  Receive Date: 20220117
  Receipt Date: 20220117
  Transmission Date: 20220423
  Serious: Yes (Other)
  Sender: FDA-Public Use
  Company Number: CA-JNJFOC-20211156237

PATIENT
  Age: 77 Year
  Sex: Male

DRUGS (13)
  1. UPTRAVI [Suspect]
     Active Substance: SELEXIPAG
     Indication: Pulmonary arterial hypertension
     Route: 048
  2. REVATIO [Suspect]
     Active Substance: SILDENAFIL CITRATE
     Indication: Pulmonary arterial hypertension
     Route: 048
     Dates: start: 20130625
  3. REVATIO [Suspect]
     Active Substance: SILDENAFIL CITRATE
     Indication: Pulmonary arterial hypertension
  4. OPSUMIT [Concomitant]
     Active Substance: MACITENTAN
  5. IMODIUM [Concomitant]
     Active Substance: LOPERAMIDE HYDROCHLORIDE
  6. ALLOPURINOL [Concomitant]
     Active Substance: ALLOPURINOL
  7. AMLODIPINE [Concomitant]
     Active Substance: AMLODIPINE BESYLATE
  8. LOPERAMIDE [Concomitant]
     Active Substance: LOPERAMIDE
  9. COUMADIN [Concomitant]
     Active Substance: WARFARIN SODIUM
  10. ROSUVASTATIN [Concomitant]
     Active Substance: ROSUVASTATIN
  11. PANTOPRAZOLE [Concomitant]
     Active Substance: PANTOPRAZOLE
  12. ASPIRIN [Concomitant]
     Active Substance: ASPIRIN
  13. PERINDOPRIL [Concomitant]
     Active Substance: PERINDOPRIL

REACTIONS (17)
  - Oxygen saturation decreased [Unknown]
  - Rash macular [Not Recovered/Not Resolved]
  - Headache [Not Recovered/Not Resolved]
  - Dyspnoea [Not Recovered/Not Resolved]
  - Paraesthesia [Unknown]
  - Hot flush [Unknown]
  - Dizziness [Unknown]
  - Chest discomfort [Recovered/Resolved]
  - Musculoskeletal discomfort [Unknown]
  - Arthralgia [Unknown]
  - Neck pain [Unknown]
  - Blood pressure systolic increased [Unknown]
  - Weight increased [Unknown]
  - Eyelid oedema [Unknown]
  - Poor quality sleep [Unknown]
  - Pain in jaw [Not Recovered/Not Resolved]
  - Pain in extremity [Not Recovered/Not Resolved]

NARRATIVE: CASE EVENT DATE: 20211101
